FAERS Safety Report 12987418 (Version 2)
Quarter: 2016Q4

REPORT INFORMATION
  Report Type: Spontaneous
  Country: US (occurrence: US)
  Receive Date: 20161130
  Receipt Date: 20161202
  Transmission Date: 20170207
  Serious: Yes (Death, Hospitalization)
  Sender: FDA-Public Use
  Company Number: US-BIOMARINAP-US-2016-111967

PATIENT
  Age: 0 Day
  Sex: Male
  Weight: 1.13 kg

DRUGS (1)
  1. KUVAN [Suspect]
     Active Substance: SAPROPTERIN DIHYDROCHLORIDE
     Indication: PHENYLKETONURIA
     Dosage: UNK
     Route: 015

REACTIONS (4)
  - Foetal growth restriction [Fatal]
  - Acidosis [Unknown]
  - Neonatal respiratory distress syndrome [Unknown]
  - Pneumothorax [Unknown]

NARRATIVE: CASE EVENT DATE: 20161031
